FAERS Safety Report 4837321-4 (Version None)
Quarter: 2005Q4

REPORT INFORMATION
  Report Type: 
  Country: None (occurrence: None)
  Receive Date: 20051122
  Receipt Date: 20051114
  Transmission Date: 20060501
  Serious: Yes (Hospitalization)
  Sender: FDA-Public Use
  Company Number: 2005155832

PATIENT
  Age: 78 Year
  Sex: Female

DRUGS (5)
  1. ZOLOFT [Suspect]
     Indication: ILL-DEFINED DISORDER
     Dosage: 25 MG, ORAL
     Route: 048
     Dates: start: 20050618, end: 20050622
  2. METOPROLOL (METOPROLOL) [Concomitant]
  3. ASPIRIN [Concomitant]
  4. EXELON [Concomitant]
  5. IMPROMEN (BROMPERIDOL) [Concomitant]

REACTIONS (2)
  - CONDITION AGGRAVATED [None]
  - RESTLESSNESS [None]
